FAERS Safety Report 8351344-2 (Version None)
Quarter: 2012Q2

REPORT INFORMATION
  Report Type: 
  Country: None (occurrence: None)
  Receive Date: 20120510
  Receipt Date: 20120508
  Transmission Date: 20120825
  Serious: No
  Sender: FDA-Public Use
  Company Number: US-PFIZER INC-2007072088

PATIENT
  Sex: Male
  Weight: 68.027 kg

DRUGS (5)
  1. PROCARDIA XL [Suspect]
     Dosage: 30 MG, EVERY OTHER DAY
     Route: 048
  2. PROCARDIA XL [Suspect]
     Indication: HYPERTENSION
     Dosage: 60 MG, 1X/DAY
     Route: 048
     Dates: start: 19920401
  3. PROCARDIA XL [Suspect]
     Dosage: 30 MG, 1X/DAY
     Route: 048
     Dates: end: 20070101
  4. PROCARDIA XL [Suspect]
     Dosage: 30 MG, 1X/DAY
     Route: 048
     Dates: start: 20100101
  5. LUMIGAN [Concomitant]
     Indication: GLAUCOMA
     Route: 047

REACTIONS (3)
  - DIZZINESS [None]
  - WEIGHT DECREASED [None]
  - BLOOD PRESSURE DECREASED [None]
